FAERS Safety Report 9122819 (Version 1)
Quarter: 2013Q1

REPORT INFORMATION
  Report Type: Spontaneous
  Country: US (occurrence: US)
  Receive Date: 20130227
  Receipt Date: 20130227
  Transmission Date: 20140127
  Serious: No
  Sender: FDA-Public Use
  Company Number: US-GLAXOSMITHKLINE-A0960035A

PATIENT
  Sex: 0

DRUGS (1)
  1. VALTREX [Suspect]
     Indication: HERPES VIRUS INFECTION
     Route: 065
     Dates: start: 2011, end: 2011

REACTIONS (3)
  - Therapeutic response unexpected [Unknown]
  - Drug administration error [Unknown]
  - Off label use [Unknown]
